FAERS Safety Report 7257899-3 (Version None)
Quarter: 2011Q1

REPORT INFORMATION
  Report Type: 
  Country: None (occurrence: None)
  Receive Date: 20110129
  Receipt Date: 20100608
  Transmission Date: 20110831
  Serious: No
  Sender: FDA-Public Use
  Company Number: US-ABBOTT-10P-163-0650197-00

PATIENT
  Age: 76 Year
  Sex: Male

DRUGS (4)
  1. SYNTHROID [Concomitant]
     Indication: PRODUCT USED FOR UNKNOWN INDICATION
  2. MTX [Concomitant]
     Indication: PRODUCT USED FOR UNKNOWN INDICATION
     Dates: start: 20100420, end: 20100601
  3. HUMIRA [Suspect]
     Indication: PSORIASIS
     Dates: start: 20100525
  4. ACIPHEX [Concomitant]
     Indication: PRODUCT USED FOR UNKNOWN INDICATION

REACTIONS (4)
  - RASH MACULAR [None]
  - EYE SWELLING [None]
  - PRURITUS [None]
  - PSORIASIS [None]
